FAERS Safety Report 13050522 (Version 1)
Quarter: 2016Q4

REPORT INFORMATION
  Report Type: Spontaneous
  Country: US (occurrence: US)
  Receive Date: 20161221
  Receipt Date: 20161221
  Transmission Date: 20170207
  Serious: Yes (Other)
  Sender: FDA-Public Use
  Company Number: US-009507513-1612USA007702

PATIENT
  Age: 27 Year
  Sex: Female
  Weight: 72.29 kg

DRUGS (1)
  1. NEXPLANON [Suspect]
     Active Substance: ETONOGESTREL
     Indication: CONTRACEPTION
     Dosage: NEXPLANON, UNK
     Route: 059

REACTIONS (2)
  - Pulmonary embolism [Recovered/Resolved]
  - Vaginal haemorrhage [Recovered/Resolved]
